FAERS Safety Report 10812174 (Version 2)
Quarter: 2015Q2

REPORT INFORMATION
  Report Type: Spontaneous
  Country: US (occurrence: US)
  Receive Date: 20150218
  Receipt Date: 20150616
  Transmission Date: 20150821
  Serious: Yes (Hospitalization)
  Sender: FDA-Public Use
  Company Number: US-UCBSA-2015002830

PATIENT
  Age: 10 Year
  Sex: Male
  Weight: 44 kg

DRUGS (8)
  1. ZONISAMIDE. [Concomitant]
     Active Substance: ZONISAMIDE
     Indication: SEIZURE
     Dosage: 12 ML, 2X/DAY (BID), ROUTE: GASTRIC TUBE
  2. LORATADINE. [Concomitant]
     Active Substance: LORATADINE
     Indication: RHINITIS ALLERGIC
     Dosage: 10 ML, QHS, ROUTE: GASTRIC TUBE
  3. VIMPAT [Suspect]
     Active Substance: LACOSAMIDE
     Indication: EPILEPSY
     Dosage: 10 ML, 2X/DAY (BID)
     Route: 048
  4. VALPROIC ACID. [Concomitant]
     Active Substance: VALPROIC ACID
     Indication: SEIZURE
     Dosage: 12 ML, 2X/DAY (BID), ROUTE: GASTRIC TUBE
  5. VIMPAT [Suspect]
     Active Substance: LACOSAMIDE
     Dosage: 8 ML, 2X/DAY (BID)
     Route: 048
     Dates: start: 20140726
  6. LAMICTAL [Concomitant]
     Active Substance: LAMOTRIGINE
     Indication: SEIZURE
     Dosage: 125 ONE IN AM AND TWO AT NIGHT
  7. LAMICTAL [Concomitant]
     Active Substance: LAMOTRIGINE
     Dosage: 5 DF, 2X/DAY (BID)
  8. CETIRIZINE [Concomitant]
     Active Substance: CETIRIZINE HYDROCHLORIDE
     Indication: HYPERSENSITIVITY
     Dosage: 10 ML, QHS, ROUTE: GASTRIC TUBE

REACTIONS (2)
  - Incorrect product storage [Unknown]
  - Intestinal obstruction [Recovered/Resolved]

NARRATIVE: CASE EVENT DATE: 201501
